FAERS Safety Report 24761091 (Version 1)
Quarter: 2024Q4

REPORT INFORMATION
  Report Type: Spontaneous
  Country: FR (occurrence: FR)
  Receive Date: 20241220
  Receipt Date: 20241220
  Transmission Date: 20250115
  Serious: Yes (Hospitalization)
  Sender: TEVA
  Company Number: None

PATIENT
  Age: 64 Year
  Sex: Male
  Weight: 58.3 kg

DRUGS (3)
  1. QUETIAPINE [Suspect]
     Active Substance: QUETIAPINE
     Indication: Childhood psychosis
     Dosage: QUETIAPINE LP 400MG 1 TAB MORNING AND EVENING.
     Route: 048
  2. LEVOMEPROMAZINE [Suspect]
     Active Substance: LEVOMEPROMAZINE
     Indication: Childhood psychosis
     Dosage: NOZINAN 4% 75MG MORNING, 50MG MIDDAY, 30MG EVENING.
     Route: 048
  3. VALPROATE SODIUM [Suspect]
     Active Substance: VALPROATE SODIUM
     Indication: Childhood psychosis
     Dosage: SODIUM VALPROATE ARROW L.P.  SUSTAINED RELEASE FILM-COATED TABLET
     Route: 048

REACTIONS (1)
  - Osteoporosis [Not Recovered/Not Resolved]

NARRATIVE: CASE EVENT DATE: 20241004
